FAERS Safety Report 15869351 (Version 9)
Quarter: 2019Q3

REPORT INFORMATION
  Report Type: Report from Study
  Country: US (occurrence: US)
  Receive Date: 20190125
  Receipt Date: 20190916
  Transmission Date: 20191004
  Serious: Yes (Hospitalization, Other)
  Sender: FDA-Public Use
  Company Number: US-ACTELION-A-US2018-182272

PATIENT
  Age: 46 Year
  Sex: Female
  Weight: 56.24 kg

DRUGS (12)
  1. VELETRI [Suspect]
     Active Substance: EPOPROSTENOL
     Dosage: 13 NG/KG, PER MIN
     Route: 042
  2. VELETRI [Suspect]
     Active Substance: EPOPROSTENOL
     Dosage: 15 NG/KG, PER MIN
     Route: 042
  3. WARFARIN [Concomitant]
     Active Substance: WARFARIN
  4. LETAIRIS [Concomitant]
     Active Substance: AMBRISENTAN
  5. VELETRI [Suspect]
     Active Substance: EPOPROSTENOL
     Dosage: 6 NG/KG, PER MIN
     Route: 042
  6. VELETRI [Suspect]
     Active Substance: EPOPROSTENOL
     Dosage: 18 NG/KG, PER MIN
     Route: 042
  7. VELETRI [Suspect]
     Active Substance: EPOPROSTENOL
     Indication: PULMONARY ARTERIAL HYPERTENSION
     Dosage: 32 NG/KG, PER MIN
     Route: 042
  8. VELETRI [Suspect]
     Active Substance: EPOPROSTENOL
     Dosage: 12 NG/KG, PER MIN
     Route: 042
  9. VELETRI [Suspect]
     Active Substance: EPOPROSTENOL
     Dosage: 3 NG/KG, PER MIN
     Route: 042
  10. TYVASO [Suspect]
     Active Substance: TREPROSTINIL
     Indication: PULMONARY ARTERIAL HYPERTENSION
     Dosage: 0.6 MG/ML, QID, 3-9 BREATHS QID
     Route: 055
     Dates: start: 20160318
  11. SILDENAFIL CITRATE. [Concomitant]
     Active Substance: SILDENAFIL CITRATE
  12. VELETRI [Suspect]
     Active Substance: EPOPROSTENOL
     Dosage: 23.4 NG/KG, PER MIN
     Route: 042

REACTIONS (26)
  - Feeling abnormal [Unknown]
  - Migraine [Recovered/Resolved]
  - Myalgia [Unknown]
  - Dizziness [Unknown]
  - Nausea [Unknown]
  - Fatigue [Unknown]
  - Dyspnoea exertional [Unknown]
  - Dyspnoea [Unknown]
  - Blood pressure decreased [Unknown]
  - Hypotension [Unknown]
  - Headache [Unknown]
  - Device leakage [Unknown]
  - Diarrhoea [Unknown]
  - Abdominal pain [Unknown]
  - Pain in jaw [Unknown]
  - Flushing [Unknown]
  - Erythema [Unknown]
  - Hepatitis [Unknown]
  - Joint swelling [Unknown]
  - Pain [Unknown]
  - Swelling face [Unknown]
  - Chest pain [Unknown]
  - Bronchitis [Unknown]
  - Pyrexia [Unknown]
  - Weight decreased [Unknown]
  - Physical deconditioning [Unknown]

NARRATIVE: CASE EVENT DATE: 20190106
